FAERS Safety Report 6415168-5 (Version None)
Quarter: 2009Q4

REPORT INFORMATION
  Report Type: 
  Country: None (occurrence: None)
  Receive Date: 20091027
  Receipt Date: 20091019
  Transmission Date: 20100525
  Serious: Yes (Hospitalization)
  Sender: FDA-Public Use
  Company Number: US-BIOGENIDEC-2009BI034042

PATIENT
  Age: 62 Year
  Sex: Female

DRUGS (2)
  1. AVONEX [Suspect]
     Indication: MULTIPLE SCLEROSIS
     Route: 030
     Dates: start: 20050428
  2. UNKNOWN BLOOD PRESSURE MEDICINE [Concomitant]

REACTIONS (3)
  - DYSPNOEA [None]
  - SWELLING [None]
  - WRONG DRUG ADMINISTERED [None]
